FAERS Safety Report 17560173 (Version 1)
Quarter: 2020Q1

REPORT INFORMATION
  Report Type: Spontaneous
  Country: US (occurrence: US)
  Receive Date: 20200318
  Receipt Date: 20200318
  Transmission Date: 20200409
  Serious: Yes (Other)
  Sender: FDA-Public Use
  Company Number: None

PATIENT
  Age: 51 Year
  Sex: Female

DRUGS (3)
  1. OMEPRAZOLE 20 [Concomitant]
  2. AUSTEDO [Suspect]
     Active Substance: DEUTETRABENAZINE
     Indication: TARDIVE DYSKINESIA
     Route: 048
     Dates: start: 20200228, end: 20200315
  3. MELOXICAM 15MG [Concomitant]
     Active Substance: MELOXICAM

REACTIONS (3)
  - Diarrhoea [None]
  - Aggression [None]
  - Agitation [None]

NARRATIVE: CASE EVENT DATE: 20200312
